FAERS Safety Report 18706784 (Version 2)
Quarter: 2021Q1

REPORT INFORMATION
  Report Type: Spontaneous
  Country: CO (occurrence: CO)
  Receive Date: 20210106
  Receipt Date: 20210226
  Transmission Date: 20210419
  Serious: Yes (Hospitalization, Other)
  Sender: FDA-Public Use
  Company Number: CO-PFIZER INC-2021003323

PATIENT
  Age: 42 Year
  Sex: Female

DRUGS (3)
  1. MORPHINE [Concomitant]
     Active Substance: MORPHINE
     Indication: PAIN
     Dosage: 4 DROP, AS NEEDED
     Route: 048
  2. SUTENT [Suspect]
     Active Substance: SUNITINIB MALATE
     Indication: GASTROINTESTINAL STROMAL TUMOUR
     Dosage: 50 MG, DAILY AT 2:30 SHE TAKES 28 PILLS AND RESTS 1 WEEK AND STARTS AGAIN
     Route: 048
     Dates: start: 202012, end: 202012
  3. SUTENT [Suspect]
     Active Substance: SUNITINIB MALATE
     Dosage: 50 MG, DAILY AT 2:30 SHE TAKES 28 PILLS AND RESTS 1 WEEK AND STARTS AGAIN
     Route: 048
     Dates: start: 202101

REACTIONS (6)
  - Malaise [Unknown]
  - Product prescribing error [Unknown]
  - Decreased appetite [Unknown]
  - Intestinal obstruction [Unknown]
  - Vomiting [Unknown]
  - Abdominal pain upper [Unknown]

NARRATIVE: CASE EVENT DATE: 20201221
